FAERS Safety Report 9080442 (Version 1)
Quarter: 2013Q1

REPORT INFORMATION
  Report Type: Report from Study
  Country: US (occurrence: US)
  Receive Date: 20130130
  Receipt Date: 20130130
  Transmission Date: 20140127
  Serious: No
  Sender: FDA-Public Use
  Company Number: US-ABBOTT-12P-163-0973290-00

PATIENT
  Sex: Male
  Weight: 87.62 kg

DRUGS (6)
  1. HUMIRA 40 MG/0.8 ML PEN [Suspect]
     Indication: RHEUMATOID ARTHRITIS
     Dates: start: 2006
  2. VITAMIN E [Concomitant]
     Indication: VITAMIN SUPPLEMENTATION
  3. IODINE [Concomitant]
     Indication: SUPPLEMENTATION THERAPY
  4. ZINC [Concomitant]
     Indication: SUPPLEMENTATION THERAPY
  5. CELENIUM [Concomitant]
     Indication: SUPPLEMENTATION THERAPY
  6. ALEVE [Concomitant]
     Indication: PAIN

REACTIONS (1)
  - Asthenia [Not Recovered/Not Resolved]
